FAERS Safety Report 7514932-9 (Version None)
Quarter: 2011Q2

REPORT INFORMATION
  Report Type: 
  Country: None (occurrence: None)
  Receive Date: 20110601
  Receipt Date: 20110428
  Transmission Date: 20111010
  Serious: Yes (Other)
  Sender: FDA-Public Use
  Company Number: US-BAYER-2011-014014

PATIENT
  Age: 17 Year
  Sex: Female
  Weight: 63.492 kg

DRUGS (25)
  1. HYDROCODONE BITARTRATE [Concomitant]
  2. FLUCONAZOLE [Concomitant]
     Dosage: 150 MG, UNK
  3. PEG 3350 POWDER FOR SOLUTION [Concomitant]
     Dosage: 20 MG, UNK
  4. ACIDOPHILUS [Concomitant]
  5. XOPENEX [Concomitant]
  6. DROSPIRENONE AND ETHINYL ESTRADIOL [Suspect]
     Indication: MENORRHAGIA
  7. PREDNISONE [Concomitant]
     Dosage: 20 MG, UNK
  8. MIRALAX [Concomitant]
  9. DROSPIRENONE AND ETHINYL ESTRADIOL [Suspect]
     Indication: ACNE
     Dosage: UNK
     Dates: start: 20080401, end: 20091001
  10. HYDROCODONE BITARTRATE [Concomitant]
  11. DOCUSATE SODIUM [Concomitant]
  12. PROTONIX [Concomitant]
     Dosage: 20 MG, UNK
  13. HYDROCODONE BITARTRATE AND ACETAMINOPHEN [Concomitant]
  14. AMITIZA [Concomitant]
     Dosage: 8 MCG/24HR, UNK
  15. FLOMAX [Concomitant]
     Dosage: 0.4 MG, UNK
  16. CITRUCEL [Concomitant]
  17. YASMIN [Suspect]
     Indication: ACNE
     Dosage: UNK
     Dates: start: 20080401, end: 20091001
  18. METOCLOPRAMIDE [Concomitant]
     Dosage: 10 MG, UNK
  19. CIPROFLOXACIN [Concomitant]
     Dosage: 500 MG, UNK
  20. VITAMINS [Concomitant]
  21. YASMIN [Suspect]
     Indication: MENORRHAGIA
  22. CEFPROZIL [Concomitant]
     Dosage: 500 MG, UNK
  23. LEXAPRO [Concomitant]
  24. KETOROLAC TROMETHAMINE [Concomitant]
     Dosage: 10 MG, UNK
  25. SULFAMETHOXAZOLE AND TRIMETHOPRIM DOUBLE STRENGTH [Concomitant]

REACTIONS (9)
  - GASTROINTESTINAL DISORDER [None]
  - CHOLECYSTITIS CHRONIC [None]
  - ABDOMINAL PAIN UPPER [None]
  - PAIN [None]
  - NAUSEA [None]
  - DIARRHOEA [None]
  - CHOLECYSTECTOMY [None]
  - VOMITING [None]
  - BACK PAIN [None]
